FAERS Safety Report 17851196 (Version 1)
Quarter: 2020Q2

REPORT INFORMATION
  Report Type: Spontaneous
  Country: US (occurrence: US)
  Receive Date: 20200602
  Receipt Date: 20200602
  Transmission Date: 20200714
  Serious: No
  Sender: FDA-Public Use
  Company Number: US-FOUNDATIONCONSUMERHC-2019-US-022317

PATIENT
  Age: 29 Year
  Sex: Female
  Weight: 77.11 kg

DRUGS (3)
  1. UNKNOWN EMERGENCY BIRTH CONTROL PILL [Suspect]
     Active Substance: UNSPECIFIED INGREDIENT
     Dosage: 1.5 MG
     Dates: start: 20191101, end: 20191101
  2. HAIR, SKIN AND NAILS VITAMIN [Concomitant]
  3. PLAN B ONE-STEP [Suspect]
     Active Substance: LEVONORGESTREL
     Indication: POST COITAL CONTRACEPTION
     Dosage: 1.5 MG
     Route: 048
     Dates: start: 20191112, end: 20191112

REACTIONS (4)
  - Back pain [Unknown]
  - Vaginal haemorrhage [Unknown]
  - Nausea [Unknown]
  - Dizziness [Unknown]

NARRATIVE: CASE EVENT DATE: 20191118
